FAERS Safety Report 8182209-7 (Version None)
Quarter: 2012Q1

REPORT INFORMATION
  Report Type: 
  Country: None (occurrence: None)
  Receive Date: 20120302
  Receipt Date: 20120222
  Transmission Date: 20120608
  Serious: Yes (Congenital Anomaly)
  Sender: FDA-Public Use
  Company Number: PHHY2011US90221

PATIENT

DRUGS (3)
  1. VALPROIC ACID [Suspect]
  2. CARBAMAZEPINE [Suspect]
  3. PHENYTOIN [Suspect]

REACTIONS (5)
  - MATERNAL DRUGS AFFECTING FOETUS [None]
  - KIDNEY MALFORMATION [None]
  - RENAL APLASIA [None]
  - FOETAL EXPOSURE DURING PREGNANCY [None]
  - CRYPTORCHISM [None]
